FAERS Safety Report 18574722 (Version 1)
Quarter: 2020Q4

REPORT INFORMATION
  Report Type: Spontaneous
  Country: FR (occurrence: FR)
  Receive Date: 20201203
  Receipt Date: 20201203
  Transmission Date: 20210114
  Serious: Yes (Hospitalization, Other)
  Sender: FDA-Public Use
  Company Number: FR-AMGEN-FRASP2020193807

PATIENT

DRUGS (1)
  1. PROLIA [Suspect]
     Active Substance: DENOSUMAB
     Indication: OSTEOPOROSIS
     Dosage: UNK
     Route: 065

REACTIONS (8)
  - Bedridden [Unknown]
  - Kyphosis [Unknown]
  - Fracture [Unknown]
  - Spinal fracture [Unknown]
  - Pathological fracture [Unknown]
  - Pain [Unknown]
  - Unevaluable event [Unknown]
  - Body height decreased [Unknown]
